FAERS Safety Report 21606667 (Version 1)
Quarter: 2022Q4

REPORT INFORMATION
  Report Type: Spontaneous
  Country: PT (occurrence: PT)
  Receive Date: 20221117
  Receipt Date: 20221117
  Transmission Date: 20230112
  Serious: Yes (Hospitalization, Other)
  Sender: FDA-Public Use
  Company Number: PT-SA-2022SA446632

PATIENT
  Age: 80 Year
  Sex: Male

DRUGS (2)
  1. AMIODARONE [Suspect]
     Active Substance: AMIODARONE
     Indication: Atrial fibrillation
     Dosage: 200 MILLIGRAM, ONCE A DAY
     Route: 065
  2. EDOXABAN [Concomitant]
     Active Substance: EDOXABAN
     Indication: Atrial fibrillation
     Dosage: UNK
     Route: 065

REACTIONS (7)
  - Cough [Recovering/Resolving]
  - Interstitial lung disease [Recovered/Resolved]
  - Respiratory failure [Recovering/Resolving]
  - Rales [Recovering/Resolving]
  - Dyspnoea exertional [Recovering/Resolving]
  - Leukocytosis [Unknown]
  - Neutrophilia [Unknown]
